FAERS Safety Report 4613830-8 (Version None)
Quarter: 2005Q1

REPORT INFORMATION
  Report Type: 
  Country: None (occurrence: None)
  Receive Date: 20050315
  Receipt Date: 20050303
  Transmission Date: 20050727
  Serious: Yes (Other)
  Sender: FDA-Public Use
  Company Number: OSCN-NO-0503S-0067

PATIENT
  Age: 41 Year
  Sex: Female

DRUGS (1)
  1. OMNISCAN [Suspect]
     Indication: BRAIN NEOPLASM
     Dosage: 10 ML, SINGLE DOSE, I.V.
     Route: 042
     Dates: start: 20050303, end: 20050303

REACTIONS (1)
  - SHOCK [None]
